FAERS Safety Report 4570309-X (Version None)
Quarter: 2005Q1

REPORT INFORMATION
  Report Type: 
  Country: None (occurrence: None)
  Receive Date: 20050127
  Receipt Date: 20050127
  Transmission Date: 20050727
  Serious: Yes (Other)
  Sender: FDA-Public Use
  Company Number: None

PATIENT
  Age: 36 Year
  Sex: Female
  Weight: 45.3597 kg

DRUGS (1)
  1. ZICAM (ZINC)   MATRIXX INITIATIVES, INC. [Suspect]
     Indication: NASOPHARYNGITIS
     Dosage: 1 SQUIRT   ONCE   NASAL
     Route: 045
     Dates: start: 20050126, end: 20050126

REACTIONS (5)
  - BURNING SENSATION [None]
  - LACRIMATION INCREASED [None]
  - NASAL DISCOMFORT [None]
  - POSTNASAL DRIP [None]
  - SINUS DISORDER [None]
